FAERS Safety Report 7979274-6 (Version None)
Quarter: 2011Q4

REPORT INFORMATION
  Report Type: 
  Country: None (occurrence: None)
  Receive Date: 20111214
  Receipt Date: 20111214
  Transmission Date: 20120403
  Serious: Yes (Life-Threatening, Other)
  Sender: FDA-Public Use
  Company Number: None

PATIENT
  Sex: Female
  Weight: 69.399 kg

DRUGS (7)
  1. VITAMIN D [Concomitant]
  2. HYDROCHLOROTHIAZIDE [Concomitant]
  3. PRAVASTATIN [Concomitant]
  4. ASPIRIN [Concomitant]
  5. PREVACID/DEXILANT/PPI [Concomitant]
  6. LISINOPRIL [Concomitant]
  7. ACTOS [Suspect]
     Indication: TYPE 2 DIABETES MELLITUS
     Dosage: 15MG
     Route: 048

REACTIONS (1)
  - TRANSITIONAL CELL CARCINOMA [None]
